FAERS Safety Report 13825248 (Version 2)
Quarter: 2017Q3

REPORT INFORMATION
  Report Type: Report from Study
  Country: BR (occurrence: BR)
  Receive Date: 20170802
  Receipt Date: 20170825
  Transmission Date: 20171127
  Serious: Yes (Hospitalization, Other)
  Sender: FDA-Public Use
  Company Number: BR-AMGEN-BRANI2017115481

PATIENT
  Age: 28 Year
  Sex: Male
  Weight: 70 kg

DRUGS (2)
  1. BLINATUMOMAB [Suspect]
     Active Substance: BLINATUMOMAB
     Indication: ACUTE LYMPHOCYTIC LEUKAEMIA
     Dosage: 28 MUG, QD
     Route: 042
     Dates: start: 20170612, end: 2017
  2. VORICONAZOL [Concomitant]
     Active Substance: VORICONAZOLE
     Dosage: 300 MG, BID
     Route: 042
     Dates: start: 20170707

REACTIONS (2)
  - Febrile neutropenia [Recovered/Resolved]
  - Bone marrow failure [Not Recovered/Not Resolved]

NARRATIVE: CASE EVENT DATE: 20170707
